FAERS Safety Report 7807318-0 (Version None)
Quarter: 2011Q4

REPORT INFORMATION
  Report Type: 
  Country: None (occurrence: None)
  Receive Date: 20111011
  Receipt Date: 20111003
  Transmission Date: 20120403
  Serious: Yes (Other)
  Sender: FDA-Public Use
  Company Number: US-BAYER-2011-074753

PATIENT
  Age: 21 Year
  Sex: Female
  Weight: 45.351 kg

DRUGS (1)
  1. MIRENA [Suspect]
     Indication: CONTRACEPTION
     Dosage: 20 MCG/24HR, CONT
     Route: 015
     Dates: start: 20100607, end: 20110629

REACTIONS (3)
  - UTERINE PERFORATION [None]
  - DEVICE DISLOCATION [None]
  - ABDOMINAL PAIN [None]
